FAERS Safety Report 11290216 (Version 2)
Quarter: 2015Q3

REPORT INFORMATION
  Report Type: Spontaneous
  Country: US (occurrence: US)
  Receive Date: 20150721
  Receipt Date: 20150722
  Transmission Date: 20151125
  Serious: Yes (Hospitalization)
  Sender: FDA-Public Use
  Company Number: US-ELI_LILLY_AND_COMPANY-US201507003910

PATIENT
  Sex: Male

DRUGS (11)
  1. ALLOPURINOL. [Concomitant]
     Active Substance: ALLOPURINOL
  2. PRILOSEC [Concomitant]
     Active Substance: OMEPRAZOLE MAGNESIUM
  3. TAMSULOSIN [Concomitant]
     Active Substance: TAMSULOSIN
  4. AGGRENOX [Concomitant]
     Active Substance: ASPIRIN\DIPYRIDAMOLE
  5. AMLODIPINE [Concomitant]
     Active Substance: AMLODIPINE BESYLATE
  6. BENAZEPRIL [Concomitant]
     Active Substance: BENAZEPRIL HYDROCHLORIDE
  7. METFORMIN [Concomitant]
     Active Substance: METFORMIN HYDROCHLORIDE
  8. CIALIS [Suspect]
     Active Substance: TADALAFIL
     Indication: ERECTILE DYSFUNCTION
     Dosage: 5 MG, PRN
  9. LEVOTHYROXINE. [Concomitant]
     Active Substance: LEVOTHYROXINE
  10. ATORVASTATIN [Concomitant]
     Active Substance: ATORVASTATIN
  11. JANUVIA [Concomitant]
     Active Substance: SITAGLIPTIN PHOSPHATE

REACTIONS (1)
  - Cerebrovascular accident [Unknown]
